FAERS Safety Report 6934801-2 (Version None)
Quarter: 2010Q3

REPORT INFORMATION
  Report Type: 
  Country: None (occurrence: None)
  Receive Date: 20100820
  Receipt Date: 20100805
  Transmission Date: 20110219
  Serious: Yes (Other)
  Sender: FDA-Public Use
  Company Number: PHHY2009AU43086

PATIENT
  Sex: Female

DRUGS (1)
  1. ZOLEDRONIC [Suspect]
     Dosage: 5 MG, UNK
     Route: 042
     Dates: start: 20090813

REACTIONS (7)
  - INFUSION SITE REACTION [None]
  - MALAISE [None]
  - MOUTH ULCERATION [None]
  - PAIN [None]
  - RASH [None]
  - SKIN ULCER [None]
  - SWELLING FACE [None]
